FAERS Safety Report 15172064 (Version 2)
Quarter: 2018Q3

REPORT INFORMATION
  Report Type: Spontaneous
  Country: JP (occurrence: JP)
  Receive Date: 20180720
  Receipt Date: 20180907
  Transmission Date: 20181010
  Serious: No
  Sender: FDA-Public Use
  Company Number: JP-PFIZER INC-2018283843

PATIENT
  Age: 40 Year
  Sex: Female

DRUGS (9)
  1. EFFEXOR [Suspect]
     Active Substance: VENLAFAXINE HYDROCHLORIDE
     Indication: MANIA
     Dosage: 112.5 MG, DAILY
     Dates: start: 20170118, end: 20170426
  2. EFFEXOR [Suspect]
     Active Substance: VENLAFAXINE HYDROCHLORIDE
     Dosage: 112.5 MG, DAILY
     Dates: start: 20180712
  3. EFFEXOR [Suspect]
     Active Substance: VENLAFAXINE HYDROCHLORIDE
     Dosage: 75 MG, DAILY
     Dates: start: 20171102
  4. EFFEXOR [Suspect]
     Active Substance: VENLAFAXINE HYDROCHLORIDE
     Dosage: 112.5 MG, DAILY
     Dates: start: 20180117
  5. EFFEXOR [Suspect]
     Active Substance: VENLAFAXINE HYDROCHLORIDE
     Dosage: 37.5 MG, DAILY
     Dates: start: 20170615, end: 20171101
  6. EFFEXOR [Suspect]
     Active Substance: VENLAFAXINE HYDROCHLORIDE
     Dosage: 225 MG, DAILY
     Dates: start: 20180324, end: 20180614
  7. EFFEXOR [Suspect]
     Active Substance: VENLAFAXINE HYDROCHLORIDE
     Indication: DEPRESSION
     Dosage: 37.5 MG, DAILY
     Dates: start: 20161214, end: 20170104
  8. EFFEXOR [Suspect]
     Active Substance: VENLAFAXINE HYDROCHLORIDE
     Dosage: 187.5 MG, DAILY
     Dates: start: 20180131, end: 20180228
  9. EFFEXOR [Suspect]
     Active Substance: VENLAFAXINE HYDROCHLORIDE
     Dosage: 75 MG, DAILY
     Dates: start: 20180518

REACTIONS (1)
  - Drug ineffective [Recovering/Resolving]

NARRATIVE: CASE EVENT DATE: 20170426
